FAERS Safety Report 8202733-8 (Version None)
Quarter: 2012Q1

REPORT INFORMATION
  Report Type: 
  Country: None (occurrence: None)
  Receive Date: 20120312
  Receipt Date: 20120306
  Transmission Date: 20120608
  Serious: Yes (Other)
  Sender: FDA-Public Use
  Company Number: BR-PFIZER INC-2012059834

PATIENT
  Age: 73 Year
  Sex: Female

DRUGS (4)
  1. LOSARTAN POTASSIUM [Concomitant]
  2. CARDIL [Concomitant]
     Dosage: UNK
     Dates: start: 20100101
  3. LIPITOR [Suspect]
     Indication: BLOOD CHOLESTEROL INCREASED
     Dosage: UNK, 2X/DAY
     Route: 048
     Dates: start: 20090101
  4. INDAPAMIDE [Concomitant]
     Dosage: UNK
     Dates: start: 20070101

REACTIONS (2)
  - NECROSIS [None]
  - ARTHROPATHY [None]
